FAERS Safety Report 15632140 (Version 1)
Quarter: 2018Q4

REPORT INFORMATION
  Report Type: Spontaneous
  Country: GB (occurrence: GB)
  Receive Date: 20181119
  Receipt Date: 20181119
  Transmission Date: 20190205
  Serious: Yes (Hospitalization)
  Sender: FDA-Public Use
  Company Number: GB-009507513-1811GBR003774

PATIENT
  Age: 81 Year
  Sex: Male

DRUGS (17)
  1. ALGINIC ACID [Concomitant]
     Active Substance: ALGINIC ACID
     Dosage: UNK
     Route: 048
  2. METHOTREXATE. [Concomitant]
     Active Substance: METHOTREXATE
     Dosage: 10 MILLIGRAM, QW
  3. SERTRALINE HYDROCHLORIDE. [Suspect]
     Active Substance: SERTRALINE HYDROCHLORIDE
     Dosage: STOPPED AS TO RESTART ON MIRTAZAPINE
     Route: 048
     Dates: start: 20180925, end: 20181003
  4. BRIMONIDINE TARTRATE. [Concomitant]
     Active Substance: BRIMONIDINE TARTRATE
     Dosage: UNK
  5. ATORVASTATIN [Concomitant]
     Active Substance: ATORVASTATIN
     Dosage: 40 MILLIGRAM
  6. ACETAMINOPHEN. [Concomitant]
     Active Substance: ACETAMINOPHEN
     Dosage: 500 MILLIGRAM
  7. IBUGEL [Concomitant]
     Active Substance: IBUPROFEN
     Dosage: UNK
  8. ALENDRONIC ACID [Concomitant]
     Active Substance: ALENDRONIC ACID
     Dosage: 70 MILLIGRAM
  9. PREDNISOLONE. [Concomitant]
     Active Substance: PREDNISOLONE
     Dosage: 50 MILLIGRAM
  10. QVAR [Concomitant]
     Active Substance: BECLOMETHASONE DIPROPIONATE
     Dosage: UNK
  11. BIMATOPROST. [Concomitant]
     Active Substance: BIMATOPROST
     Dosage: 100 MICROGRAM
  12. VENTOLIN [Concomitant]
     Active Substance: ALBUTEROL SULFATE
     Dosage: 100 MICROGRAM
  13. ADCAL-D3 [Concomitant]
     Active Substance: CALCIUM CARBONATE\CHOLECALCIFEROL
     Dosage: UNK
  14. TIMOLOL. [Concomitant]
     Active Substance: TIMOLOL
     Dosage: 5MG/ML
  15. DORZOLAMIDE HYDROCHLORIDE. [Concomitant]
     Active Substance: DORZOLAMIDE HYDROCHLORIDE
     Dosage: 20MG/ML
  16. MIRTAZAPINE. [Suspect]
     Active Substance: MIRTAZAPINE
     Dosage: STOPPED BY GP AND SWITCHED TO SERTRALINE.
     Route: 048
     Dates: end: 20180924
  17. FOLIC ACID. [Concomitant]
     Active Substance: FOLIC ACID
     Dosage: 5 MILLIGRAM

REACTIONS (4)
  - Dizziness [Unknown]
  - Drug withdrawal syndrome [Unknown]
  - Hyperhidrosis [Unknown]
  - Malaise [Unknown]

NARRATIVE: CASE EVENT DATE: 20181003
